FAERS Safety Report 9697033 (Version 2)
Quarter: 2016Q1

REPORT INFORMATION
  Report Type: Report from Study
  Country: GB (occurrence: GB)
  Receive Date: 20131120
  Receipt Date: 20160226
  Transmission Date: 20160526
  Serious: Yes (Other)
  Sender: FDA-Public Use
  Company Number: GB-ROCHE-1304152

PATIENT

DRUGS (6)
  1. RITUXIMAB [Suspect]
     Active Substance: RITUXIMAB
     Indication: NON-HODGKIN^S LYMPHOMA
     Dosage: ON DAY 1 +/- DAY 8 OF EACH CYCLE
     Route: 042
  2. METHOTREXATE [Suspect]
     Active Substance: METHOTREXATE
     Indication: NON-HODGKIN^S LYMPHOMA
     Route: 037
  3. DEXAMETHASONE. [Suspect]
     Active Substance: DEXAMETHASONE
     Indication: NON-HODGKIN^S LYMPHOMA
     Dosage: DAYS 1-3
     Route: 042
  4. IDARUBICIN [Suspect]
     Active Substance: IDARUBICIN
     Indication: NON-HODGKIN^S LYMPHOMA
     Route: 042
  5. CYTOSINE ARABINOSIDE [Suspect]
     Active Substance: CYTARABINE
     Indication: NON-HODGKIN^S LYMPHOMA
     Dosage: OVER 1 HOUR, DAY 1 AND 2
     Route: 042
  6. METHOTREXATE [Suspect]
     Active Substance: METHOTREXATE
     Indication: NON-HODGKIN^S LYMPHOMA
     Dosage: ON DAY 3
     Route: 042

REACTIONS (4)
  - Haematotoxicity [Unknown]
  - Diarrhoea [Unknown]
  - Stomatitis [Unknown]
  - Infection [Unknown]
